FAERS Safety Report 7604197-1 (Version None)
Quarter: 2011Q3

REPORT INFORMATION
  Report Type: 
  Country: None (occurrence: None)
  Receive Date: 20110712
  Receipt Date: 20110707
  Transmission Date: 20111222
  Serious: Yes (Disabling)
  Sender: FDA-Public Use
  Company Number: GB-MERCK-1107GBR00032

PATIENT
  Age: 43 Year
  Sex: Female
  Weight: 142 kg

DRUGS (7)
  1. AMITRIPTYLINE HYDROCHLORIDE [Concomitant]
     Route: 065
     Dates: start: 20110316
  2. ERYTHROMYCIN [Concomitant]
     Route: 065
     Dates: start: 20110411, end: 20110418
  3. METFORMIN [Concomitant]
     Route: 065
     Dates: start: 20110510
  4. CANDESARTAN [Concomitant]
     Route: 065
     Dates: start: 20110411
  5. ZOCOR [Suspect]
     Route: 048
     Dates: start: 20110316
  6. QUININE [Concomitant]
     Route: 065
     Dates: start: 20110616, end: 20110617
  7. ACETAMINOPHEN AND CODEINE PHOSPHATE [Concomitant]
     Route: 065
     Dates: start: 20110411, end: 20110423

REACTIONS (2)
  - PAIN IN EXTREMITY [None]
  - MYALGIA [None]
